FAERS Safety Report 8788991 (Version 1)
Quarter: 2012Q4

REPORT INFORMATION
  Report Type: 
  Country: US (occurrence: US)
  Receive Date: 20120917
  Receipt Date: 20120917
  Transmission Date: 20130627
  Serious: No
  Sender: FDA-Public Use
  Company Number: US-PFIZER INC-2012133850

PATIENT
  Age: 79 Year
  Sex: Female

DRUGS (9)
  1. SUTENT [Suspect]
     Indication: LUNG NEOPLASM MALIGNANT
     Dosage: 50 mg, 1x/day (4 Weeks and 2 weeks off)
     Route: 048
     Dates: start: 201201, end: 20120511
  2. SUTENT [Suspect]
     Indication: METASTASES TO LIVER
     Dosage: 50 mg
     Dates: start: 20120210, end: 20120510
  3. SUTENT [Suspect]
     Indication: BREAST CANCER
  4. REQUIP [Concomitant]
     Dosage: 25 mg, UNK
     Route: 048
  5. TOPROL [Concomitant]
     Dosage: 25 mg, UNK
     Route: 048
  6. NEXIUM [Concomitant]
     Dosage: UNK
     Route: 048
  7. LOMOTIL [Concomitant]
     Dosage: Prn
     Route: 048
  8. PERCOCET [Concomitant]
     Dosage: 7.5 mg, Prn
  9. EFEXOR XR [Concomitant]
     Dosage: 37.5 mg, UNK

REACTIONS (2)
  - Diarrhoea [Unknown]
  - Asthenia [Unknown]
